FAERS Safety Report 8237226-5 (Version None)
Quarter: 2012Q1

REPORT INFORMATION
  Report Type: 
  Country: None (occurrence: None)
  Receive Date: 20120327
  Receipt Date: 20120315
  Transmission Date: 20120608
  Serious: Yes (Hospitalization, Other)
  Sender: FDA-Public Use
  Company Number: GB-SANOFI-AVENTIS-2012SA018545

PATIENT
  Sex: Male

DRUGS (1)
  1. JEVTANA KIT [Suspect]

REACTIONS (2)
  - PLEURAL EFFUSION [None]
  - NEUTROPENIC INFECTION [None]
